FAERS Safety Report 9155101 (Version 1)
Quarter: 2013Q1

REPORT INFORMATION
  Report Type: Spontaneous
  Country: US (occurrence: US)
  Receive Date: 20130311
  Receipt Date: 20130311
  Transmission Date: 20140127
  Serious: Yes (Hospitalization)
  Sender: FDA-Public Use
  Company Number: US-BAYER-2013-028094

PATIENT
  Age: 27 Year
  Sex: Female
  Weight: 70.3 kg

DRUGS (14)
  1. YAZ [Suspect]
     Indication: PREMENSTRUAL SYNDROME
  2. YAZ [Suspect]
     Indication: POLYCYSTIC OVARIES
  3. YASMIN [Suspect]
  4. BEYAZ [Suspect]
     Indication: POLYCYSTIC OVARIES
  5. LEVOCETIRIZINE DIHYDROCHLORIDE [Concomitant]
     Dosage: 5 MG, UNK
     Route: 048
     Dates: start: 20110411, end: 20110508
  6. SINGULAIR [Concomitant]
     Dosage: 10 MG, UNK
     Route: 048
     Dates: start: 20110419, end: 20110521
  7. METFORMIN [Concomitant]
     Dosage: 500 MG, UNK
     Route: 048
     Dates: start: 20110426, end: 20110521
  8. PATANOL [Concomitant]
  9. NASONEX [Concomitant]
  10. SKELAXIN [Concomitant]
  11. VITAMINS [Concomitant]
  12. LOESTRIN 24 FE [Concomitant]
  13. COLACE [Concomitant]
  14. HYDROCODONE/ACETAMINOPHEN [Concomitant]

REACTIONS (1)
  - Pulmonary embolism [None]
